FAERS Safety Report 19253306 (Version 2)
Quarter: 2021Q3

REPORT INFORMATION
  Report Type: Spontaneous
  Country: US (occurrence: US)
  Receive Date: 20210513
  Receipt Date: 20210722
  Transmission Date: 20211014
  Serious: No
  Sender: FDA-Public Use
  Company Number: US-PFIZER INC-2021457287

PATIENT
  Age: 67 Year
  Sex: Female
  Weight: 45.36 kg

DRUGS (1)
  1. XELJANZ [Suspect]
     Active Substance: TOFACITINIB CITRATE
     Dosage: 5 MG, 2X/DAY

REACTIONS (3)
  - Illness [Unknown]
  - Vision blurred [Unknown]
  - Stress [Not Recovered/Not Resolved]
